FAERS Safety Report 15192964 (Version 1)
Quarter: 2018Q3

REPORT INFORMATION
  Report Type: Report from Study
  Country: CA (occurrence: CA)
  Receive Date: 20180725
  Receipt Date: 20180725
  Transmission Date: 20181010
  Serious: Yes (Hospitalization, Other)
  Sender: FDA-Public Use
  Company Number: CA-AMGEN-CANSL2018092039

PATIENT
  Age: 84 Year
  Sex: Female

DRUGS (2)
  1. TYLENOL [Concomitant]
     Active Substance: ACETAMINOPHEN
     Dosage: UNK
  2. PROLIA [Suspect]
     Active Substance: DENOSUMAB
     Indication: OSTEOPOROSIS
     Dosage: 60 MG, UNK
     Route: 058
     Dates: start: 20180621, end: 20180621

REACTIONS (8)
  - Fall [Unknown]
  - Angina pectoris [Unknown]
  - Malnutrition [Not Recovered/Not Resolved]
  - Hypocalcaemia [Recovered/Resolved]
  - Nausea [Unknown]
  - Blood phosphorus decreased [Recovered/Resolved]
  - Asthenia [Not Recovered/Not Resolved]
  - Pain [Unknown]

NARRATIVE: CASE EVENT DATE: 2018
